FAERS Safety Report 10515056 (Version 1)
Quarter: 2014Q4

REPORT INFORMATION
  Report Type: Spontaneous
  Country: HK (occurrence: HK)
  Receive Date: 20141014
  Receipt Date: 20141014
  Transmission Date: 20150528
  Serious: Yes (Other)
  Sender: FDA-Public Use
  Company Number: HK-ROCHE-1473450

PATIENT

DRUGS (1)
  1. ZELBORAF [Suspect]
     Active Substance: VEMURAFENIB
     Indication: GENE MUTATION
     Route: 065

REACTIONS (3)
  - Neoplasm [Unknown]
  - Pyrexia [Unknown]
  - Rash [Recovering/Resolving]
